FAERS Safety Report 6387921-8 (Version None)
Quarter: 2009Q4

REPORT INFORMATION
  Report Type: 
  Country: None (occurrence: None)
  Receive Date: 20091001
  Receipt Date: 20091001
  Transmission Date: 20100525
  Serious: No
  Sender: FDA-Public Use
  Company Number: None

PATIENT
  Age: 16 Year
  Sex: Male
  Weight: 88.4514 kg

DRUGS (6)
  1. INVEGA [Suspect]
     Indication: ANXIETY
     Dosage: 6 MG 1 X DAY PILL
     Dates: start: 20090801, end: 20090901
  2. INVEGA [Suspect]
     Indication: MAJOR DEPRESSION
     Dosage: 6 MG 1 X DAY PILL
     Dates: start: 20090801, end: 20090901
  3. INVEGA [Suspect]
     Indication: PSYCHOTIC DISORDER
     Dosage: 6 MG 1 X DAY PILL
     Dates: start: 20090801, end: 20090901
  4. ABILIFY [Suspect]
     Indication: ANXIETY
     Dosage: 10 MG 1 X DAY PILL
     Dates: start: 20070801, end: 20090801
  5. ABILIFY [Suspect]
     Indication: MAJOR DEPRESSION
     Dosage: 10 MG 1 X DAY PILL
     Dates: start: 20070801, end: 20090801
  6. ABILIFY [Suspect]
     Indication: PSYCHOTIC DISORDER
     Dosage: 10 MG 1 X DAY PILL
     Dates: start: 20070801, end: 20090801

REACTIONS (5)
  - ANXIETY [None]
  - ERECTION INCREASED [None]
  - EXCESSIVE EYE BLINKING [None]
  - IMPAIRED DRIVING ABILITY [None]
  - STRABISMUS [None]
